FAERS Safety Report 5345566-2 (Version None)
Quarter: 2007Q2

REPORT INFORMATION
  Report Type: 
  Country: None (occurrence: None)
  Receive Date: 20070605
  Receipt Date: 20060508
  Transmission Date: 20071010
  Serious: No
  Sender: FDA-Public Use
  Company Number: US-ASTRAZENECA-2006UW09014

PATIENT
  Age: 80 Year
  Sex: Male
  Weight: 77.1 kg

DRUGS (3)
  1. PRILOSEC [Suspect]
     Indication: GASTROOESOPHAGEAL REFLUX DISEASE
     Route: 048
  2. PRILOSEC [Suspect]
     Indication: OESOPHAGEAL SPASM
     Route: 048
  3. ASPIRIN [Concomitant]

REACTIONS (2)
  - ALBUMINURIA [None]
  - HAEMATURIA [None]
